FAERS Safety Report 11723191 (Version 1)
Quarter: 2015Q4

REPORT INFORMATION
  Report Type: Spontaneous
  Country: US (occurrence: None)
  Receive Date: 20151110
  Receipt Date: 20151110
  Transmission Date: 20160304
  Serious: Yes (Life-Threatening, Hospitalization, Disabling, Other)
  Sender: FDA-Public Use
  Company Number: None

PATIENT
  Age: 63 Year
  Sex: Female
  Weight: 63.5 kg

DRUGS (2)
  1. ESCITALOPRAM [Suspect]
     Active Substance: ESCITALOPRAM OXALATE
     Indication: DEPRESSION
     Route: 048
     Dates: start: 20150901, end: 20150913
  2. CLONOZEPAM (GENERIC FOR KLONOPIN) [Concomitant]
     Active Substance: CLONAZEPAM

REACTIONS (4)
  - Headache [None]
  - Therapy cessation [None]
  - Product substitution issue [None]
  - Cerebrovascular accident [None]

NARRATIVE: CASE EVENT DATE: 20151019
